FAERS Safety Report 12256653 (Version 1)
Quarter: 2016Q2

REPORT INFORMATION
  Report Type: Spontaneous
  Country: US (occurrence: US)
  Receive Date: 20160412
  Receipt Date: 20160412
  Transmission Date: 20160815
  Serious: No
  Sender: FDA-Public Use
  Company Number: US-009507513-1604USA002055

PATIENT
  Sex: Male

DRUGS (3)
  1. PROSCAR [Suspect]
     Active Substance: FINASTERIDE
     Route: 048
  2. FINASTERIDE. [Suspect]
     Active Substance: FINASTERIDE
     Route: 048
  3. PROPECIA [Suspect]
     Active Substance: FINASTERIDE
     Dosage: UNK
     Route: 048
     Dates: start: 2001, end: 2012

REACTIONS (4)
  - Erectile dysfunction [Not Recovered/Not Resolved]
  - Depression [Unknown]
  - Sexual dysfunction [Not Recovered/Not Resolved]
  - Anxiety [Unknown]
